FAERS Safety Report 19199028 (Version 1)
Quarter: 2021Q2

REPORT INFORMATION
  Report Type: Spontaneous
  Country: GB (occurrence: GB)
  Receive Date: 20210430
  Receipt Date: 20210430
  Transmission Date: 20210717
  Serious: Yes (Other)
  Sender: FDA-Public Use
  Company Number: GB-TEVA-2021-GB-1905112

PATIENT
  Sex: Female

DRUGS (1)
  1. LOSARTAN. [Suspect]
     Active Substance: LOSARTAN
     Dosage: 100 MILLIGRAM DAILY; IN MORNING.
     Route: 065

REACTIONS (5)
  - Headache [Unknown]
  - Arrhythmia [Unknown]
  - Fatigue [Unknown]
  - Malaise [Unknown]
  - Product administration error [Unknown]
